FAERS Safety Report 8531933-2 (Version None)
Quarter: 2012Q3

REPORT INFORMATION
  Report Type: 
  Country: None (occurrence: None)
  Receive Date: 20120723
  Receipt Date: 20120713
  Transmission Date: 20120928
  Serious: Yes (Death, Life-Threatening, Hospitalization, Other)
  Sender: FDA-Public Use
  Company Number: US-BAXTER-2009BH018286

PATIENT
  Sex: Female
  Weight: 99.88 kg

DRUGS (18)
  1. WARFARIN SODIUM [Concomitant]
     Route: 065
  2. GLUCOPHAGE [Concomitant]
     Route: 048
  3. HEPARIN SODIUM 1,000 UNITS IN DEXTROSE 5% [Suspect]
     Route: 042
     Dates: start: 20071111, end: 20071111
  4. HEPARIN [Suspect]
     Indication: CARDIAC PACEMAKER INSERTION
     Route: 042
     Dates: start: 20071119
  5. HEPARIN [Suspect]
     Route: 042
     Dates: start: 20071112
  6. AVAPRO [Concomitant]
     Route: 048
  7. GLYBURIDE [Concomitant]
     Route: 048
  8. HEPARIN [Suspect]
     Route: 042
     Dates: start: 20071111, end: 20071113
  9. HEPARIN [Suspect]
     Route: 042
     Dates: start: 20071111
  10. OXYGEN [Concomitant]
     Route: 065
  11. SYNTHROID [Concomitant]
     Route: 048
  12. HEPARIN [Suspect]
     Route: 042
     Dates: start: 20071123
  13. NITROGLYCERIN [Concomitant]
     Route: 061
  14. ASPIRIN [Concomitant]
     Route: 048
  15. COREG [Concomitant]
     Route: 048
  16. HEPARIN SODIUM 1,000 UNITS IN DEXTROSE 5% [Suspect]
     Route: 042
     Dates: start: 20071111, end: 20071111
  17. LASIX [Concomitant]
     Route: 048
  18. NOVOLIN R [Concomitant]
     Route: 058

REACTIONS (23)
  - PLEURAL EFFUSION [None]
  - HEPARIN-INDUCED THROMBOCYTOPENIA [None]
  - RENAL FAILURE ACUTE [None]
  - COUGH [None]
  - DYSPHAGIA [None]
  - ABDOMINAL PAIN UPPER [None]
  - HYPERHIDROSIS [None]
  - DRUG HYPERSENSITIVITY [None]
  - PULMONARY OEDEMA [None]
  - ACUTE MYOCARDIAL INFARCTION [None]
  - ORGAN FAILURE [None]
  - DYSPNOEA [None]
  - LETHARGY [None]
  - WHEEZING [None]
  - SYNCOPE [None]
  - ORAL FUNGAL INFECTION [None]
  - VOMITING [None]
  - CONFUSIONAL STATE [None]
  - BLOOD PRESSURE DECREASED [None]
  - SWOLLEN TONGUE [None]
  - NAUSEA [None]
  - BRADYCARDIA [None]
  - CHEST PAIN [None]
